FAERS Safety Report 4687229-2 (Version None)
Quarter: 2005Q2

REPORT INFORMATION
  Report Type: 
  Country: None (occurrence: None)
  Receive Date: 20050606
  Receipt Date: 20050523
  Transmission Date: 20051028
  Serious: Yes (Other)
  Sender: FDA-Public Use
  Company Number: 2005061388

PATIENT
  Age: 32 Year
  Sex: Female

DRUGS (3)
  1. BEXTRA [Suspect]
     Indication: URINARY TRACT INFECTION
     Dosage: 40 MG (40 MG, 1 IN 1 D), ORAL
     Route: 048
     Dates: start: 20050314, end: 20050319
  2. PROPRANOLOL [Concomitant]
  3. CIPROFLOXACIN [Concomitant]

REACTIONS (3)
  - ABDOMINAL PAIN UPPER [None]
  - CHEST PAIN [None]
  - SKIN DISCOLOURATION [None]
